FAERS Safety Report 5996817-2 (Version None)
Quarter: 2008Q4

REPORT INFORMATION
  Report Type: 
  Country: None (occurrence: None)
  Receive Date: 20081212
  Receipt Date: 20081201
  Transmission Date: 20090506
  Serious: Yes (Hospitalization, Other)
  Sender: FDA-Public Use
  Company Number: JP-ABBOTT-08P-087-0452570-00

PATIENT
  Age: 78 Year
  Sex: Male

DRUGS (8)
  1. LEUPROLIDE ACETATE [Suspect]
     Indication: PROSTATE CANCER STAGE III
     Route: 058
     Dates: start: 20071102, end: 20080718
  2. BICALUTAMIDE [Suspect]
     Indication: PROSTATE CANCER STAGE III
     Route: 048
     Dates: start: 20071102, end: 20071214
  3. AMLODIPINE BESYLATE [Concomitant]
     Indication: HYPERTENSION
     Route: 048
  4. ALFACALCIDOL [Concomitant]
     Indication: OSTEOPOROSIS
     Route: 048
     Dates: start: 20071228
  5. MAGNESIUM OXIDE [Concomitant]
     Indication: CONSTIPATION
     Route: 048
     Dates: start: 20071221
  6. ISONIAZID [Concomitant]
     Indication: ANTIBIOTIC PROPHYLAXIS
     Dosage: 2 T DAILY
     Dates: start: 20080103
  7. BACTRIM [Concomitant]
     Indication: ANTIBIOTIC PROPHYLAXIS
     Dosage: 1 T DAILY
     Dates: start: 20080103
  8. PYRIDOXAL PHOSPHATE [Concomitant]
     Indication: ANTIBIOTIC PROPHYLAXIS
     Dosage: 30 MG DAILY
     Dates: start: 20080103

REACTIONS (6)
  - CONSTIPATION [None]
  - INJECTION SITE EROSION [None]
  - INJECTION SITE ERYTHEMA [None]
  - INJECTION SITE INDURATION [None]
  - INTERSTITIAL LUNG DISEASE [None]
  - OSTEOPOROSIS [None]
